FAERS Safety Report 6186174-3 (Version None)
Quarter: 2009Q2

REPORT INFORMATION
  Report Type: 
  Country: None (occurrence: None)
  Receive Date: 20090511
  Receipt Date: 20090429
  Transmission Date: 20091009
  Serious: Yes (Other)
  Sender: FDA-Public Use
  Company Number: SE-PFIZER INC-2009184669

PATIENT

DRUGS (5)
  1. CABASER [Suspect]
     Indication: RESTLESS LEGS SYNDROME
     Dates: start: 20050201
  2. VENLAFAXINE HYDROCHLORIDE [Concomitant]
     Dosage: UNK
  3. COAPROVEL [Concomitant]
     Dosage: UNK
  4. AMLODIPINE BESILATE [Concomitant]
     Dosage: UNK
  5. CELEBRA [Concomitant]
     Dosage: UNK

REACTIONS (1)
  - FIBROSIS [None]
